FAERS Safety Report 11275293 (Version 1)
Quarter: 2015Q3

REPORT INFORMATION
  Report Type: Spontaneous
  Country: BR (occurrence: BR)
  Receive Date: 20150716
  Receipt Date: 20150716
  Transmission Date: 20151125
  Serious: Yes (Other)
  Sender: FDA-Public Use
  Company Number: BR-ROCHE-1607744

PATIENT
  Age: 81 Year
  Sex: Female
  Weight: 52 kg

DRUGS (13)
  1. PROLOPA [Suspect]
     Active Substance: BENSERAZIDE\LEVODOPA
     Indication: PARKINSON^S DISEASE
     Dosage: 100/25MG
     Route: 065
     Dates: start: 201401
  2. RIVOTRIL [Suspect]
     Active Substance: CLONAZEPAM
     Indication: ANXIETY
     Route: 060
  3. PROLOPA [Suspect]
     Active Substance: BENSERAZIDE\LEVODOPA
     Dosage: 200/50 MG
     Route: 065
     Dates: start: 201401
  4. RIVOTRIL [Suspect]
     Active Substance: CLONAZEPAM
     Indication: ANXIETY
     Route: 048
  5. RIVASTIGMINE TARTRATE. [Concomitant]
     Active Substance: RIVASTIGMINE TARTRATE
     Indication: DEMENTIA ALZHEIMER^S TYPE
     Route: 065
  6. DEPURA [Concomitant]
     Active Substance: CHOLECALCIFEROL
     Indication: UNDERWEIGHT
     Route: 065
  7. SIMVASTATIN. [Concomitant]
     Active Substance: SIMVASTATIN
     Indication: BLOOD CHOLESTEROL ABNORMAL
     Route: 065
  8. OMEPRAZOLE. [Concomitant]
     Active Substance: OMEPRAZOLE
     Indication: PROPHYLAXIS
     Dosage: ON THE MORNING WHILE ON FASTING
     Route: 065
  9. HIDANTAL [Concomitant]
     Active Substance: PHENYTOIN SODIUM
     Indication: SEIZURE
     Route: 065
  10. RIVOTRIL [Suspect]
     Active Substance: CLONAZEPAM
     Indication: DEPRESSION
  11. RIVOTRIL [Suspect]
     Active Substance: CLONAZEPAM
     Indication: DEPRESSION
  12. PAROXETINE [Concomitant]
     Active Substance: PAROXETINE\PAROXETINE HYDROCHLORIDE
     Indication: DEPRESSION
     Dosage: ON THE MORNING
     Route: 065
  13. VITAMIN C [Concomitant]
     Active Substance: ASCORBIC ACID
     Indication: URINARY TRACT INFECTION

REACTIONS (7)
  - Abdominal pain upper [Recovering/Resolving]
  - Musculoskeletal stiffness [Unknown]
  - Nausea [Recovering/Resolving]
  - Agitation [Unknown]
  - Mobility decreased [Unknown]
  - Speech disorder [Unknown]
  - Sedation [Unknown]

NARRATIVE: CASE EVENT DATE: 2014
